FAERS Safety Report 4350262-4 (Version None)
Quarter: 2004Q2

REPORT INFORMATION
  Report Type: 
  Country: None (occurrence: None)
  Receive Date: 20040426
  Receipt Date: 20040421
  Transmission Date: 20050107
  Serious: Yes (Other)
  Sender: FDA-Public Use
  Company Number: 2004-02-1738

PATIENT
  Sex: Female

DRUGS (2)
  1. VIRAFERONPEG [Suspect]
     Indication: HEPATITIS C
     Dates: start: 20030501, end: 20031101
  2. REBETOL [Suspect]
     Indication: HEPATITIS C
     Dates: start: 20030501, end: 20031101

REACTIONS (4)
  - DYSPNOEA [None]
  - PERICARDITIS [None]
  - RENAL DISORDER [None]
  - SARCOIDOSIS [None]
